FAERS Safety Report 5509034-7 (Version None)
Quarter: 2007Q4

REPORT INFORMATION
  Report Type: 
  Country: None (occurrence: None)
  Receive Date: 20071107
  Receipt Date: 20071026
  Transmission Date: 20080405
  Serious: Yes (Hospitalization)
  Sender: FDA-Public Use
  Company Number: NL-JNJFOC-20071001660

PATIENT
  Age: 33 Year
  Sex: Female
  Weight: 93 kg

DRUGS (9)
  1. RISPERDAL CONSTA [Suspect]
     Indication: SCHIZOPHRENIA, DISORGANISED TYPE
     Route: 030
  2. IBUPROFEN [Suspect]
     Indication: POISONING
  3. PARACETAMOL [Suspect]
     Route: 048
  4. PARACETAMOL [Suspect]
     Indication: POISONING
     Route: 048
  5. AKINETON [Concomitant]
  6. EFFEXOR [Concomitant]
  7. OXAZEPAM [Concomitant]
  8. OXYBUTININE [Concomitant]
  9. LACTULOSE [Concomitant]

REACTIONS (1)
  - DRUG TOXICITY [None]
